FAERS Safety Report 7879358-7 (Version None)
Quarter: 2011Q4

REPORT INFORMATION
  Report Type: 
  Country: None (occurrence: None)
  Receive Date: 20111101
  Receipt Date: 20111021
  Transmission Date: 20120403
  Serious: Yes (Hospitalization)
  Sender: FDA-Public Use
  Company Number: US-BAYER-2011-032887

PATIENT
  Age: 27 Year
  Sex: Female
  Weight: 167.8 kg

DRUGS (18)
  1. PHENERGAN HCL [Concomitant]
  2. LORTAB [Concomitant]
  3. PROPO-N/APAP [Concomitant]
     Route: 048
  4. PROMETHAZINE [Concomitant]
     Dosage: 25 MG, QID
     Route: 048
  5. ORTHO TRI-CYCLEN [Concomitant]
     Dosage: UNK
     Dates: start: 19980101
  6. IBUPROFEN [Concomitant]
     Dosage: UNK UNK, PRN
  7. AZITRIMYC [Concomitant]
  8. YASMIN [Suspect]
     Indication: CONTRACEPTION
  9. DROSPIRENONE AND ETHINYL ESTRADIOL [Suspect]
     Indication: CONTRACEPTION
  10. FLURBIPROFEN [Concomitant]
     Dosage: 100 MG, BID
     Route: 048
  11. YASMIN [Suspect]
     Indication: OVARIAN CYST
  12. LYRICA [Concomitant]
     Dosage: 50 MG, BID
     Route: 048
  13. ANDEHIST [Concomitant]
     Route: 048
  14. YAZ [Suspect]
     Indication: OVARIAN CYST
  15. DROSPIRENONE AND ETHINYL ESTRADIOL [Suspect]
     Indication: OVARIAN CYST
  16. METHYLDOPA [Concomitant]
     Route: 048
  17. HYDROCODONE BITARTRATE AND ACETAMINOPHEN [Concomitant]
     Dosage: UNK UNK, PRN
     Route: 048
  18. YAZ [Suspect]
     Indication: CONTRACEPTION

REACTIONS (4)
  - PAIN [None]
  - GALLBLADDER DISORDER [None]
  - INJURY [None]
  - CHOLECYSTITIS CHRONIC [None]
